FAERS Safety Report 7320158-4 (Version None)
Quarter: 2011Q1

REPORT INFORMATION
  Report Type: 
  Country: None (occurrence: None)
  Receive Date: 20110228
  Receipt Date: 20110224
  Transmission Date: 20110831
  Serious: Yes (Life-Threatening)
  Sender: FDA-Public Use
  Company Number: KR-ASTRAZENECA-2011SE10578

PATIENT
  Age: 27 Year
  Sex: Male
  Weight: 65 kg

DRUGS (9)
  1. GLYCOPYRROLATE [Concomitant]
     Route: 042
  2. ROCURONIUM BROMIDE [Concomitant]
     Route: 042
  3. FENTANYL [Concomitant]
     Indication: INDUCTION OF ANAESTHESIA
     Route: 042
  4. LIDOCAINE W/ EPINEPHRINE [Suspect]
     Route: 042
  5. LIDOCAINE W/ EPINEPHRINE [Suspect]
     Route: 042
  6. PROPOFOL [Concomitant]
     Indication: INDUCTION OF ANAESTHESIA
     Route: 042
  7. LIDOCAINE W/ EPINEPHRINE [Suspect]
     Dosage: 4 ML MIXED WITH 1;200,000 DIVIDING THE TOTAL AMOUNT INTO SEVERAL TIMES
     Route: 058
  8. MIDAZOLAM HCL [Concomitant]
     Route: 042
  9. SEVOFLURANE [Concomitant]
     Route: 055

REACTIONS (1)
  - SUPRAVENTRICULAR TACHYCARDIA [None]
